FAERS Safety Report 6438365-1 (Version None)
Quarter: 2009Q4

REPORT INFORMATION
  Report Type: 
  Country: None (occurrence: None)
  Receive Date: 20091112
  Receipt Date: 20091103
  Transmission Date: 20100525
  Serious: Yes (Other)
  Sender: FDA-Public Use
  Company Number: US-JNJFOC-20091101915

PATIENT
  Age: 45 Year
  Sex: Male

DRUGS (2)
  1. INFLIXIMAB [Suspect]
     Dosage: RECEIVED 2ND INFUSION 4-6 WEEKS AFTER INITIAL INFUSION
     Route: 042
  2. INFLIXIMAB [Suspect]
     Indication: SWEAT GLAND INFECTION
     Route: 042

REACTIONS (1)
  - TUBERCULOSIS [None]
